FAERS Safety Report 9200762 (Version 1)
Quarter: 2013Q1

REPORT INFORMATION
  Report Type: Spontaneous
  Country: JP (occurrence: None)
  Receive Date: 20130327
  Receipt Date: 20130327
  Transmission Date: 20140127
  Serious: Yes (Other)
  Sender: FDA-Public Use
  Company Number: 2012-12464

PATIENT
  Age: 62 Year
  Sex: Male

DRUGS (2)
  1. CARBOPLATIN (WATSON LABORATORIES) (CARBOPLATIN) UNK, UNKUNK? [Suspect]
     Indication: NON-SMALL CELL LUNG CANCER
     Dosage: DAY 1, Q3W
     Route: 042
     Dates: start: 201009
  2. PACLITAXEL (UNKNOWN) (PACLITAXEL) UNK, UNKUNK [Suspect]
     Indication: NON-SMALL CELL LUNG CANCER
     Dosage: DAY 1, EVERY 3 WEEKS, INTRAVENOUS
     Route: 042
     Dates: start: 201009

REACTIONS (2)
  - Posterior reversible encephalopathy syndrome [None]
  - Blood pressure increased [None]
